FAERS Safety Report 6892698-3 (Version None)
Quarter: 2010Q3

REPORT INFORMATION
  Report Type: 
  Country: None (occurrence: None)
  Receive Date: 20100731
  Receipt Date: 20080820
  Transmission Date: 20110219
  Serious: No
  Sender: FDA-Public Use
  Company Number: US-PFIZER INC-2008070290

PATIENT
  Sex: Male
  Weight: 115.9 kg

DRUGS (3)
  1. GABAPENTIN [Suspect]
     Indication: NEURALGIA
     Dates: start: 20080201
  2. LYRICA [Suspect]
     Indication: NEURALGIA
     Dates: start: 20080804, end: 20080818
  3. DRUG, UNSPECIFIED [Concomitant]

REACTIONS (5)
  - DYSPHEMIA [None]
  - JOINT DISLOCATION [None]
  - MYOCLONUS [None]
  - NEUROTRANSMITTER LEVEL ALTERED [None]
  - TREMOR [None]
